FAERS Safety Report 13660722 (Version 3)
Quarter: 2019Q4

REPORT INFORMATION
  Report Type: Report from Study
  Country: CO (occurrence: CO)
  Receive Date: 20170616
  Receipt Date: 20191029
  Transmission Date: 20200122
  Serious: Yes (Life-Threatening, Other)
  Sender: FDA-Public Use
  Company Number: CO-BRISTOL-MYERS SQUIBB COMPANY-BMS-2017-045071

PATIENT
  Age: 50 Year
  Sex: Male

DRUGS (2)
  1. VERAPAMIL [Concomitant]
     Active Substance: VERAPAMIL HYDROCHLORIDE
     Indication: PRODUCT USED FOR UNKNOWN INDICATION
     Route: 065
  2. NIVOLUMAB [Suspect]
     Active Substance: NIVOLUMAB
     Indication: RENAL CANCER
     Dosage: 200 MG, Q2WK
     Route: 042
     Dates: start: 20170405, end: 20191016

REACTIONS (13)
  - Headache [Recovering/Resolving]
  - Feeling hot [Recovering/Resolving]
  - Insomnia [Recovering/Resolving]
  - Arthralgia [Unknown]
  - Fatigue [Recovering/Resolving]
  - Rash [Recovering/Resolving]
  - Pneumonitis [Recovering/Resolving]
  - Hypertension [Recovering/Resolving]
  - Pruritus [Recovering/Resolving]
  - Constipation [Recovering/Resolving]
  - Visual acuity reduced [Recovering/Resolving]
  - Blood chromogranin A increased [Recovering/Resolving]
  - Bronchitis [Unknown]

NARRATIVE: CASE EVENT DATE: 20170419
